FAERS Safety Report 15439965 (Version 1)
Quarter: 2018Q3

REPORT INFORMATION
  Report Type: Spontaneous
  Country: US (occurrence: US)
  Receive Date: 20180924
  Receipt Date: 20180924
  Transmission Date: 20181010
  Serious: Yes (Hospitalization)
  Sender: FDA-Public Use
  Company Number: None

PATIENT
  Age: 53 Year
  Sex: Female
  Weight: 100 kg

DRUGS (7)
  1. CISPLATIN 153MG CYCLE 4 [Suspect]
     Active Substance: CISPLATIN
  2. FOSAPREPITANT [Concomitant]
     Active Substance: FOSAPREPITANT
  3. DEXAMETHASONE. [Concomitant]
     Active Substance: DEXAMETHASONE
  4. PALANOSETRON [Concomitant]
  5. METHOTREXATE. [Concomitant]
     Active Substance: METHOTREXATE
  6. SOLU?MEDROL [Concomitant]
     Active Substance: METHYLPREDNISOLONE SODIUM SUCCINATE
  7. OLANAZAPINE [Concomitant]

REACTIONS (5)
  - Urticaria [None]
  - Hypertension [None]
  - Rash [None]
  - Pruritus [None]
  - Chest pain [None]

NARRATIVE: CASE EVENT DATE: 20180904
